FAERS Safety Report 18111362 (Version 3)
Quarter: 2020Q3

REPORT INFORMATION
  Report Type: Spontaneous
  Country: US (occurrence: US)
  Receive Date: 20200804
  Receipt Date: 20200824
  Transmission Date: 20201103
  Serious: No
  Sender: FDA-Public Use
  Company Number: US-009507513-2007USA006436

PATIENT
  Age: 83 Year
  Sex: Female

DRUGS (2)
  1. ASMANEX [Suspect]
     Active Substance: MOMETASONE FUROATE
     Dosage: 1 PUFF, ONCE A DAY
     Dates: start: 20200610, end: 20200715
  2. ASMANEX HFA [Suspect]
     Active Substance: MOMETASONE FUROATE
     Dosage: 2 PUFFS TWICE A DAY
     Dates: start: 20200715

REACTIONS (3)
  - Poor quality device used [Unknown]
  - Breath sounds abnormal [Unknown]
  - Product contamination [Unknown]

NARRATIVE: CASE EVENT DATE: 2020
